FAERS Safety Report 4949663-2 (Version None)
Quarter: 2006Q1

REPORT INFORMATION
  Report Type: 
  Country: None (occurrence: None)
  Receive Date: 20060316
  Receipt Date: 20060307
  Transmission Date: 20060701
  Serious: Yes (Hospitalization, Other)
  Sender: FDA-Public Use
  Company Number: 2006025778

PATIENT
  Sex: Female
  Weight: 90.7194 kg

DRUGS (5)
  1. XALATAN [Suspect]
     Indication: GLAUCOMA
     Dosage: 1 DROP (1 DROP, 1 IN 1 D) , OPHTHALMIC
     Route: 047
     Dates: start: 20040101
  2. XALATAN [Suspect]
     Indication: INTRAOCULAR PRESSURE INCREASED
     Dosage: 1 DROP (1 DROP, 1 IN 1 D) , OPHTHALMIC
     Route: 047
     Dates: start: 20040101
  3. SYNTHROID [Concomitant]
  4. VERAPAMIL [Concomitant]
  5. VALSARTAN [Concomitant]

REACTIONS (6)
  - CIRCUMSTANCE OR INFORMATION CAPABLE OF LEADING TO MEDICATION ERROR [None]
  - CORNEAL INFILTRATES [None]
  - EYE INFECTION BACTERIAL [None]
  - EYE IRRITATION [None]
  - EYELID MARGIN CRUSTING [None]
  - GOITRE [None]
